FAERS Safety Report 23355596 (Version 2)
Quarter: 2024Q1

REPORT INFORMATION
  Report Type: Spontaneous
  Country: US (occurrence: US)
  Receive Date: 20240102
  Receipt Date: 20240222
  Transmission Date: 20240410
  Serious: No
  Sender: FDA-Public Use
  Company Number: US-GSKCCFUS-Case-01892843_AE-105607

PATIENT
  Sex: Male

DRUGS (1)
  1. TRELEGY ELLIPTA [Suspect]
     Active Substance: FLUTICASONE FUROATE\UMECLIDINIUM BROMIDE\VILANTEROL TRIFENATATE
     Indication: Product used for unknown indication
     Dosage: UNK,100/62.5/25

REACTIONS (2)
  - Drug ineffective [Unknown]
  - Product complaint [Unknown]
